FAERS Safety Report 14837011 (Version 1)
Quarter: 2018Q2

REPORT INFORMATION
  Report Type: Spontaneous
  Country: US (occurrence: US)
  Receive Date: 20180502
  Receipt Date: 20180502
  Transmission Date: 20180711
  Serious: No
  Sender: FDA-Public Use
  Company Number: US-009507513-1804USA007671

PATIENT

DRUGS (4)
  1. TEMOZOLOMIDE. [Suspect]
     Active Substance: TEMOZOLOMIDE
     Indication: NEUROBLASTOMA
     Dosage: 4 DAYS REPEATED EVERY 21 TO 28 DAYS
     Route: 048
  2. SARGRAMOSTIM [Concomitant]
     Active Substance: SARGRAMOSTIM
     Indication: NEUROBLASTOMA
     Dosage: 4 DAYS REPEATED EVERY 21 TO 28 DAYS
  3. ANTI-GD2 MONOCLONAL ANTIBODY CH14.18 [Concomitant]
     Indication: NEUROBLASTOMA
     Dosage: 4 DAYS REPEATED EVERY 21 TO 28 DAYS
     Route: 042
  4. IRINOTECAN HYDROCHLORIDE. [Concomitant]
     Active Substance: IRINOTECAN HYDROCHLORIDE
     Indication: NEUROBLASTOMA
     Dosage: 4 DAYS REPEATED EVERY 21 TO 28 DAYS

REACTIONS (1)
  - Off label use [Unknown]
